FAERS Safety Report 19936037 (Version 2)
Quarter: 2021Q4

REPORT INFORMATION
  Report Type: Spontaneous
  Country: US (occurrence: US)
  Receive Date: 20211008
  Receipt Date: 20211124
  Transmission Date: 20220304
  Serious: No
  Sender: FDA-Public Use
  Company Number: US-SUNOVION-2021SUN003757

PATIENT
  Sex: Female

DRUGS (1)
  1. KYNMOBI [Suspect]
     Active Substance: APOMORPHINE HYDROCHLORIDE
     Indication: Parkinson^s disease
     Dosage: 10 MG
     Route: 060

REACTIONS (5)
  - Depressed mood [Unknown]
  - Anxiety [Unknown]
  - Dyspnoea [Unknown]
  - Product solubility abnormal [Unknown]
  - Product gel formation [Unknown]
